FAERS Safety Report 7643635-5 (Version None)
Quarter: 2011Q3

REPORT INFORMATION
  Report Type: 
  Country: None (occurrence: None)
  Receive Date: 20110729
  Receipt Date: 20110725
  Transmission Date: 20111222
  Serious: Yes (Death)
  Sender: FDA-Public Use
  Company Number: PHHY2011JP57745

PATIENT
  Sex: Female
  Weight: 38 kg

DRUGS (4)
  1. NORVASC [Concomitant]
     Indication: HYPERTENSION
     Dosage: 5 MG, UNK
     Dates: start: 20080109
  2. EURAX H [Concomitant]
     Dosage: UNK UKN, UNK
     Route: 062
     Dates: start: 20080109
  3. VALSARTAN [Suspect]
     Indication: HYPERTENSION
     Dosage: 80 MG, QD
     Route: 048
     Dates: start: 20080109
  4. NESPO [Concomitant]
     Dosage: UNK UKN, UNK
     Dates: start: 20080109

REACTIONS (3)
  - HAEMORRHAGIC CEREBRAL INFARCTION [None]
  - EATING DISORDER [None]
  - DEHYDRATION [None]
